FAERS Safety Report 14241347 (Version 1)
Quarter: 2017Q4

REPORT INFORMATION
  Report Type: Spontaneous
  Country: US (occurrence: US)
  Receive Date: 20171130
  Receipt Date: 20171130
  Transmission Date: 20180321
  Serious: Yes (Other)
  Sender: FDA-Public Use
  Company Number: US-ROCHE-2027657

PATIENT
  Sex: Female

DRUGS (1)
  1. ERIVEDGE [Suspect]
     Active Substance: VISMODEGIB
     Indication: BASAL CELL CARCINOMA
     Dosage: NO
     Route: 065
     Dates: start: 201603, end: 201704

REACTIONS (9)
  - Skin disorder [Not Recovered/Not Resolved]
  - Decreased appetite [Recovered/Resolved]
  - Weight decreased [Unknown]
  - Alopecia [Recovering/Resolving]
  - Ill-defined disorder [Not Recovered/Not Resolved]
  - Impaired healing [Not Recovered/Not Resolved]
  - Muscle spasms [Recovered/Resolved]
  - Wound secretion [Not Recovered/Not Resolved]
  - Dysgeusia [Recovered/Resolved]
